FAERS Safety Report 6484522-8 (Version None)
Quarter: 2009Q4

REPORT INFORMATION
  Report Type: 
  Country: None (occurrence: None)
  Receive Date: 20091209
  Receipt Date: 20091201
  Transmission Date: 20100525
  Serious: Yes (Other)
  Sender: FDA-Public Use
  Company Number: PHEH2009US16384

PATIENT
  Sex: Male

DRUGS (19)
  1. EXJADE [Suspect]
     Indication: THALASSAEMIA
     Dosage: 500 MG, TID
     Route: 048
     Dates: start: 20091028, end: 20091113
  2. EXJADE [Suspect]
     Indication: IRON OVERLOAD
  3. PRILOSEC [Concomitant]
  4. CYMBALTA [Concomitant]
  5. ZYPREXA [Concomitant]
  6. MULTIVITAMIN ^LAPPE^ [Concomitant]
  7. FISH OIL [Concomitant]
  8. METAMUCIL [Concomitant]
  9. COLACE [Concomitant]
  10. KLONOPIN [Concomitant]
  11. ACTOS [Concomitant]
  12. HALDOL [Concomitant]
  13. GABAPENTIN [Concomitant]
  14. MIRALAX [Concomitant]
  15. VITAMIN E [Concomitant]
  16. GLIPIZIDE [Concomitant]
  17. GLUCOPHAGE [Concomitant]
  18. PROZAC [Concomitant]
  19. LEVAQUIN [Concomitant]

REACTIONS (2)
  - ACUTE LEUKAEMIA [None]
  - RASH [None]
